FAERS Safety Report 4769848-8 (Version None)
Quarter: 2005Q3

REPORT INFORMATION
  Report Type: 
  Country: None (occurrence: None)
  Receive Date: 20050912
  Receipt Date: 20050817
  Transmission Date: 20060218
  Serious: No
  Sender: FDA-Public Use
  Company Number: 2005-01689

PATIENT
  Age: 60 Year
  Sex: Female
  Weight: 85.3 kg

DRUGS (1)
  1. VELCADE [Suspect]
     Indication: MULTIPLE MYELOMA
     Dosage: BID INTRAVENOUS
     Route: 042
     Dates: start: 20050501, end: 20050701

REACTIONS (1)
  - PARAESTHESIA [None]
